FAERS Safety Report 11812164 (Version 1)
Quarter: 2015Q4

REPORT INFORMATION
  Report Type: Spontaneous
  Country: US (occurrence: US)
  Receive Date: 20151208
  Receipt Date: 20151208
  Transmission Date: 20160305
  Serious: No
  Sender: FDA-Public Use
  Company Number: US-LPDUSPRD-20150065

PATIENT
  Sex: Female

DRUGS (1)
  1. VENOFER [Suspect]
     Active Substance: IRON SUCROSE
     Dosage: 500 MG
     Route: 042

REACTIONS (6)
  - Nausea [Recovered/Resolved]
  - Heart rate increased [Unknown]
  - Dizziness [Recovered/Resolved]
  - Palpitations [Unknown]
  - Bone pain [Unknown]
  - Decreased appetite [Unknown]

NARRATIVE: CASE EVENT DATE: 201412
